FAERS Safety Report 4805925-0 (Version None)
Quarter: 2005Q4

REPORT INFORMATION
  Report Type: 
  Country: None (occurrence: None)
  Receive Date: 20051018
  Receipt Date: 20051003
  Transmission Date: 20060501
  Serious: Yes (Other)
  Sender: FDA-Public Use
  Company Number: 2005S1000296

PATIENT
  Age: 58 Year
  Sex: Female
  Weight: 99.7913 kg

DRUGS (3)
  1. ACITRETIN (10 MG) [Suspect]
     Indication: PSORIASIS
     Dosage: 10 MG; QOD; PO
     Route: 048
     Dates: start: 20050412, end: 20050803
  2. ENBREL [Concomitant]
  3. PREDNISONE [Concomitant]

REACTIONS (6)
  - DIABETES MELLITUS [None]
  - DIARRHOEA [None]
  - FATIGUE [None]
  - JOINT SWELLING [None]
  - NO THERAPEUTIC RESPONSE [None]
  - PROTEINURIA [None]
